FAERS Safety Report 6634389-X (Version None)
Quarter: 2010Q1

REPORT INFORMATION
  Report Type: 
  Country: None (occurrence: None)
  Receive Date: 20100311
  Receipt Date: 20100311
  Transmission Date: 20100710
  Serious: No
  Sender: FDA-Public Use
  Company Number: None

PATIENT
  Age: 65 Year
  Sex: Male

DRUGS (1)
  1. TARCEVA [Suspect]
     Dosage: 150MG 1 QD PO
     Route: 048
     Dates: start: 20100211

REACTIONS (2)
  - PRURITUS GENERALISED [None]
  - RASH GENERALISED [None]
